FAERS Safety Report 17464318 (Version 1)
Quarter: 2020Q1

REPORT INFORMATION
  Report Type: Spontaneous
  Country: US (occurrence: US)
  Receive Date: 20200226
  Receipt Date: 20200226
  Transmission Date: 20200409
  Serious: No
  Sender: FDA-Public Use
  Company Number: US-FERRINGPH-2019FE01882

PATIENT
  Sex: Male

DRUGS (2)
  1. TRANEXAMIC ACID C [Concomitant]
     Active Substance: TRANEXAMIC ACID
  2. STIMATE [Suspect]
     Active Substance: DESMOPRESSIN ACETATE
     Indication: VON WILLEBRAND^S DISEASE
     Dosage: 1.5 MG, AS NEEDED
     Route: 045
     Dates: start: 20150820

REACTIONS (2)
  - Feeling hot [Unknown]
  - Fatigue [Unknown]
